FAERS Safety Report 8884396 (Version 1)
Quarter: 2012Q4

REPORT INFORMATION
  Report Type: 
  Country: US (occurrence: US)
  Receive Date: 20121102
  Receipt Date: 20121102
  Transmission Date: 20130627
  Serious: No
  Sender: FDA-Public Use
  Company Number: US-ASTRAZENECA-2012SE22978

PATIENT
  Age: 65 Year
  Sex: Female
  Weight: 77.1 kg

DRUGS (4)
  1. CRESTOR [Suspect]
     Route: 048
  2. CRESTOR [Suspect]
     Dosage: HALF TABLET
     Route: 048
  3. CRESTOR [Suspect]
     Dosage: EVERY OTHER DAY
     Route: 048
  4. CO-ENZYME Q 10 [Concomitant]

REACTIONS (5)
  - Drug intolerance [Unknown]
  - Myalgia [Unknown]
  - Abdominal pain upper [Unknown]
  - Nausea [Unknown]
  - Off label use [Unknown]
